FAERS Safety Report 6670277-0 (Version None)
Quarter: 2010Q2

REPORT INFORMATION
  Report Type: 
  Country: None (occurrence: None)
  Receive Date: 20100405
  Receipt Date: 20100326
  Transmission Date: 20101027
  Serious: Yes (Death, Hospitalization)
  Sender: FDA-Public Use
  Company Number: 006616

PATIENT
  Sex: Female

DRUGS (6)
  1. KEPPRA [Suspect]
     Dosage: (500 MG BID ORAL)
     Route: 048
     Dates: start: 20091201, end: 20100105
  2. TEMODAL [Suspect]
     Indication: GLIOBLASTOMA
     Dosage: (100 MG ORAL)
     Route: 048
     Dates: start: 20091201, end: 20100105
  3. BACTRIM [Suspect]
     Indication: ANTIFUNGAL PROPHYLAXIS
     Dosage: (160 MG + 800 MG)
     Dates: start: 20091201, end: 20100105
  4. HUMULIN /01040301/ [Concomitant]
  5. NAPRILENE [Concomitant]
  6. MEPRAL /00661201/ [Concomitant]

REACTIONS (16)
  - AREFLEXIA [None]
  - BALANCE DISORDER [None]
  - BONE MARROW FAILURE [None]
  - COMA [None]
  - DEEP VEIN THROMBOSIS [None]
  - DISORIENTATION [None]
  - ECCHYMOSIS [None]
  - EPISTAXIS [None]
  - GENERAL PHYSICAL HEALTH DETERIORATION [None]
  - HAEMATOMA [None]
  - HEADACHE [None]
  - LUNG CONSOLIDATION [None]
  - MIOSIS [None]
  - PETECHIAE [None]
  - PLEURAL EFFUSION [None]
  - SUPRAVENTRICULAR TACHYCARDIA [None]
